FAERS Safety Report 17117213 (Version 1)
Quarter: 2019Q4

REPORT INFORMATION
  Report Type: Report from Study
  Country: ES (occurrence: ES)
  Receive Date: 20191205
  Receipt Date: 20191205
  Transmission Date: 20200122
  Serious: Yes (Other)
  Sender: FDA-Public Use
  Company Number: ES-PFIZER INC-2019519586

PATIENT
  Age: 87 Year
  Sex: Male

DRUGS (9)
  1. SEGURIL [Concomitant]
     Active Substance: FUROSEMIDE
     Dosage: UNK
  2. DUODART [Concomitant]
     Active Substance: DUTASTERIDE\TAMSULOSIN
     Dosage: UNK
  3. GABAPENTIN. [Suspect]
     Active Substance: GABAPENTIN
     Indication: DEMENTIA ALZHEIMER^S TYPE
     Dosage: 300 MG, 2X/DAY (EVERY 12 HOURS, 1-0-1)
     Route: 048
     Dates: start: 201802, end: 20180323
  4. SERTRALINE [Concomitant]
     Active Substance: SERTRALINE HYDROCHLORIDE
     Dosage: UNK
  5. RISPERIDONE. [Suspect]
     Active Substance: RISPERIDONE
     Indication: DEMENTIA ALZHEIMER^S TYPE
     Dosage: 1.5 MG, 1X/DAY (1-0-2)
     Route: 048
     Dates: start: 201802, end: 20180323
  6. DIGOXIN. [Concomitant]
     Active Substance: DIGOXIN
     Dosage: UNK
  7. DISTRANEURINE [CLOMETHIAZOLE] [Concomitant]
     Active Substance: CLOMETHIAZOLE
     Dosage: UNK
  8. SINTROM [Concomitant]
     Active Substance: ACENOCOUMAROL
     Dosage: UNK
  9. OMEPRAZOLE. [Concomitant]
     Active Substance: OMEPRAZOLE
     Dosage: UNK

REACTIONS (1)
  - Extrapyramidal disorder [Recovering/Resolving]

NARRATIVE: CASE EVENT DATE: 201803
